FAERS Safety Report 4512857-4 (Version None)
Quarter: 2004Q4

REPORT INFORMATION
  Report Type: 
  Country: None (occurrence: None)
  Receive Date: 20041119
  Receipt Date: 20041119
  Transmission Date: 20050328
  Serious: No
  Sender: FDA-Public Use
  Company Number: None

PATIENT
  Sex: Female
  Weight: 56.6996 kg

DRUGS (1)
  1. IMITREX [Suspect]
     Indication: MIGRAINE
     Dosage: 50 MG 4 TABLETS PER MONTH
     Route: 048
     Dates: start: 19950101, end: 20040101

REACTIONS (6)
  - ANGER [None]
  - HALLUCINATION [None]
  - MOOD SWINGS [None]
  - MUSCLE TWITCHING [None]
  - NIGHTMARE [None]
  - THINKING ABNORMAL [None]
